FAERS Safety Report 7057562-8 (Version None)
Quarter: 2010Q4

REPORT INFORMATION
  Report Type: 
  Country: None (occurrence: None)
  Receive Date: 20101022
  Receipt Date: 20101013
  Transmission Date: 20110411
  Serious: Yes (Other)
  Sender: FDA-Public Use
  Company Number: HR-ASTRAZENECA-2010SE48646

PATIENT
  Age: 834 Month
  Sex: Female

DRUGS (6)
  1. PLENDIL [Suspect]
     Indication: ANGINA UNSTABLE
     Route: 048
     Dates: start: 20100806, end: 20101011
  2. ZYLLT [Concomitant]
     Indication: ANGINA PECTORIS
     Route: 048
     Dates: start: 20100801
  3. VALSACOMBI [Concomitant]
     Indication: ESSENTIAL HYPERTENSION
     Dosage: 160/25 MG DAILY
     Route: 048
     Dates: start: 20100101
  4. CARVETREND [Concomitant]
     Indication: ANGINA PECTORIS
     Route: 048
     Dates: start: 20080301
  5. SORTIS [Concomitant]
     Indication: ANGINA PECTORIS
     Route: 048
     Dates: start: 20080301
  6. OMACOR [Concomitant]
     Indication: ANGINA PECTORIS
     Route: 048
     Dates: start: 20100101

REACTIONS (1)
  - DERMATITIS ALLERGIC [None]
